FAERS Safety Report 20570556 (Version 6)
Quarter: 2022Q3

REPORT INFORMATION
  Report Type: Report from Study
  Country: US (occurrence: US)
  Receive Date: 20220309
  Receipt Date: 20220929
  Transmission Date: 20221026
  Serious: Yes (Other)
  Sender: FDA-Public Use
  Company Number: NVSC2022US050316

PATIENT
  Age: 35 Year
  Sex: Female
  Weight: 80.272 kg

DRUGS (13)
  1. MYFORTIC [Suspect]
     Active Substance: MYCOPHENOLATE SODIUM
     Indication: Renal transplant
     Dosage: 720 MG, BID
     Route: 048
     Dates: start: 20210702, end: 20220128
  2. APIXABAN [Concomitant]
     Active Substance: APIXABAN
     Indication: Thrombosis prophylaxis
     Dosage: 5 MG, BID
     Route: 065
  3. ATOVAQUONE [Concomitant]
     Active Substance: ATOVAQUONE
     Indication: Pneumocystis jirovecii pneumonia
     Dosage: 1500 MG, QD
     Route: 065
     Dates: start: 20210702
  4. AZATHIOPRINE [Concomitant]
     Active Substance: AZATHIOPRINE
     Indication: Renal transplant
     Dosage: 100 MG, QD
     Route: 065
     Dates: start: 20220131
  5. KEFLEX [Concomitant]
     Active Substance: CEPHALEXIN
     Indication: Urinary tract infection
     Dosage: 250 MG (EVERY 6 HOURS)
     Route: 065
     Dates: start: 20220215, end: 20220222
  6. VITAMIN D [Concomitant]
     Active Substance: VITAMIN D NOS
     Indication: Supplementation therapy
     Dosage: 1250 UG, QW
     Route: 065
     Dates: start: 20211110
  7. GABAPENTIN [Concomitant]
     Active Substance: GABAPENTIN
     Indication: Neuralgia
     Dosage: 100 MG, PRN (DAILY)
     Route: 065
     Dates: end: 20220128
  8. MAGNESIUM [Concomitant]
     Active Substance: MAGNESIUM
     Indication: Supplementation therapy
     Dosage: 420 MG, QD
     Route: 065
     Dates: start: 20210702
  9. NIFEDIPINE [Concomitant]
     Active Substance: NIFEDIPINE
     Indication: Blood pressure abnormal
     Dosage: 60 MG, BID
     Route: 065
     Dates: start: 20210702
  10. TACROLIMUS [Concomitant]
     Active Substance: TACROLIMUS
     Indication: Renal transplant
     Dosage: 6 MG, BID
     Route: 065
     Dates: start: 20210702
  11. PREDNISONE [Concomitant]
     Active Substance: PREDNISONE
     Indication: Renal transplant
     Dosage: 5 MG, QD
     Route: 065
     Dates: start: 20210702
  12. PANTOPRAZOLE [Concomitant]
     Active Substance: PANTOPRAZOLE
     Indication: Stress ulcer
     Dosage: 40 MG, QD
     Route: 065
     Dates: start: 20210702, end: 20220128
  13. ROSUVASTATIN [Concomitant]
     Active Substance: ROSUVASTATIN
     Indication: Blood cholesterol
     Dosage: 10 MG, QD
     Route: 065
     Dates: start: 20210720, end: 20220128

REACTIONS (3)
  - Abortion spontaneous [Unknown]
  - Unintended pregnancy [Unknown]
  - Maternal exposure during pregnancy [Unknown]

NARRATIVE: CASE EVENT DATE: 20220128
